FAERS Safety Report 6035445-X (Version None)
Quarter: 2009Q1

REPORT INFORMATION
  Report Type: 
  Country: None (occurrence: None)
  Receive Date: 20090113
  Receipt Date: 20090108
  Transmission Date: 20090719
  Serious: Yes (Hospitalization)
  Sender: FDA-Public Use
  Company Number: US-BRISTOL-MYERS SQUIBB COMPANY-14464929

PATIENT
  Age: 47 Year
  Sex: Male
  Weight: 80 kg

DRUGS (4)
  1. CISPLATIN [Suspect]
     Indication: LARYNGEAL CANCER
     Dosage: FIRST DOSE ON 30JUN08, 100 MG/M2 ON DAY 1 AND DAY 22
     Route: 042
     Dates: start: 20080721, end: 20080721
  2. RADIATION THERAPY [Suspect]
     Indication: LARYNGEAL CANCER
     Dosage: 1 DOSAGE FORM= 70GY;FIRST DOSE ON 30JUN08;NO OF FRACTION: 35; NO OF ELAPSED DAY: 39;
     Dates: start: 20080808, end: 20080808
  3. DIFLUCAN [Concomitant]
  4. OXYCODONE [Concomitant]

REACTIONS (5)
  - ASPIRATION [None]
  - DYSPHAGIA [None]
  - PNEUMONITIS [None]
  - PYREXIA [None]
  - STOMATITIS [None]
